FAERS Safety Report 6073327-8 (Version None)
Quarter: 2009Q1

REPORT INFORMATION
  Report Type: 
  Country: None (occurrence: None)
  Receive Date: 20090211
  Receipt Date: 20090202
  Transmission Date: 20090719
  Serious: Yes (Other)
  Sender: FDA-Public Use
  Company Number: PHHY2008JP33291

PATIENT
  Age: 78 Year
  Sex: Male

DRUGS (5)
  1. LAMISIL [Suspect]
     Dosage: 125MG/DAY
     Route: 048
     Dates: start: 20081027, end: 20081222
  2. LAMISIL [Suspect]
     Dosage: 125MG/DAY
     Route: 048
     Dates: start: 20081107
  3. LAMISIL [Suspect]
     Dosage: 125MG/DAY
     Route: 048
     Dates: start: 20081125
  4. LAMISIL [Suspect]
     Dosage: UNK
     Dates: start: 20081201, end: 20081201
  5. ALLEGRA [Concomitant]
     Dosage: 120 MG UNK
     Route: 048
     Dates: start: 20081027, end: 20081222

REACTIONS (10)
  - ALANINE AMINOTRANSFERASE INCREASED [None]
  - ASPARTATE AMINOTRANSFERASE INCREASED [None]
  - DROOLING [None]
  - DYSGEUSIA [None]
  - FACE OEDEMA [None]
  - FEELING ABNORMAL [None]
  - HEPATIC FUNCTION ABNORMAL [None]
  - LIVER DISORDER [None]
  - PLATELET COUNT DECREASED [None]
  - VISUAL ACUITY REDUCED [None]
